FAERS Safety Report 6482784-4 (Version None)
Quarter: 2009Q4

REPORT INFORMATION
  Report Type: 
  Country: None (occurrence: None)
  Receive Date: 20091204
  Receipt Date: 20091119
  Transmission Date: 20100525
  Serious: Yes (Other)
  Sender: FDA-Public Use
  Company Number: 1000010533

PATIENT
  Age: 38 Year
  Sex: Female

DRUGS (4)
  1. ESCITALOPRAM [Suspect]
     Indication: ANXIETY DISORDER
     Dosage: 7.5 MG (7.5 MG,1 IN 1 D),ORAL
     Route: 048
  2. ESCITALOPRAM [Suspect]
     Indication: ANXIETY DISORDER
     Dosage: 15 MG (15 MG,1 IN 1 D),ORAL
     Route: 048
  3. EPILEXTER [Suspect]
  4. PRISDAL [Concomitant]

REACTIONS (2)
  - FACE OEDEMA [None]
  - RASH [None]
